FAERS Safety Report 7319372-3 (Version None)
Quarter: 2011Q1

REPORT INFORMATION
  Report Type: 
  Country: None (occurrence: None)
  Receive Date: 20110228
  Receipt Date: 20100223
  Transmission Date: 20110831
  Serious: No
  Sender: FDA-Public Use
  Company Number: A0845962A

PATIENT
  Age: 24 Year
  Sex: Female

DRUGS (1)
  1. LAMICTAL [Suspect]
     Indication: BIPOLAR DISORDER
     Dosage: 2TAB TWICE PER DAY
     Route: 048
     Dates: start: 20100210

REACTIONS (3)
  - SKIN EXFOLIATION [None]
  - ORAL MUCOSAL ERUPTION [None]
  - RASH [None]
